FAERS Safety Report 24802062 (Version 1)
Quarter: 2025Q1

REPORT INFORMATION
  Report Type: Spontaneous
  Country: CN (occurrence: CN)
  Receive Date: 20250102
  Receipt Date: 20250102
  Transmission Date: 20250408
  Serious: Yes (Hospitalization)
  Sender: ABBVIE
  Company Number: CN-ABBVIE-6069154

PATIENT
  Age: 74 Year
  Sex: Male
  Weight: 65 kg

DRUGS (4)
  1. VENCLEXTA [Suspect]
     Active Substance: VENETOCLAX
     Indication: Acute myeloid leukaemia
     Dosage: 200 MILLIGRAM
     Route: 048
     Dates: start: 20241206, end: 20241220
  2. SODIUM CHLORIDE [Concomitant]
     Active Substance: SODIUM CHLORIDE
     Indication: Immunodeficiency
     Dosage: 100 MILLILITER
     Route: 041
     Dates: start: 20241205, end: 20241212
  3. AZACITIDINE [Suspect]
     Active Substance: AZACITIDINE
     Indication: Myelosuppression
     Dosage: 135 MILLIGRAM
     Route: 058
     Dates: start: 20241205, end: 20241212
  4. DOLASETRON MESYLATE [Suspect]
     Active Substance: DOLASETRON MESYLATE
     Indication: Synovial cyst
     Dosage: 200 MILLIGRAM
     Route: 041
     Dates: start: 20241205, end: 20241212

REACTIONS (1)
  - Pancytopenia [Not Recovered/Not Resolved]

NARRATIVE: CASE EVENT DATE: 20241223
